FAERS Safety Report 19265227 (Version 1)
Quarter: 2021Q2

REPORT INFORMATION
  Report Type: Spontaneous
  Country: GB (occurrence: GB)
  Receive Date: 20210517
  Receipt Date: 20210517
  Transmission Date: 20210717
  Serious: Yes (Other)
  Sender: FDA-Public Use
  Company Number: GB-MYLANLABS-2021M1028233

PATIENT
  Age: 88 Year
  Sex: Female
  Weight: 53 kg

DRUGS (15)
  1. HYPROMELLOSE [Concomitant]
     Active Substance: HYPROMELLOSES
     Indication: ILL-DEFINED DISORDER
     Dosage: 1 GTT DROPS, PRN (ONE DROP AS NEEDED)
     Dates: start: 20200310
  2. ZOPICLONE [Concomitant]
     Active Substance: ZOPICLONE
     Indication: ILL-DEFINED DISORDER
     Dosage: TAKE ONE AT NIGHT PRN
     Dates: start: 20210303, end: 20210317
  3. EDOXABAN [Concomitant]
     Active Substance: EDOXABAN TOSYLATE
     Indication: ILL-DEFINED DISORDER
     Dosage: UNK, PM (TAKE ONE EVERY EVENING)
     Dates: start: 20210113
  4. RAMIPRIL. [Concomitant]
     Active Substance: RAMIPRIL
     Indication: ILL-DEFINED DISORDER
     Dosage: 1 DOSAGE FORM, QD (TAKE ONE CAPSULE DAILY)
     Dates: start: 20210422
  5. ALENDRONIC ACID [Concomitant]
     Active Substance: ALENDRONIC ACID
     Indication: ILL-DEFINED DISORDER
     Dosage: 1 DOSAGE FORM, QW (TAKE ONE TABLET WEEKLY)
     Dates: start: 20201027
  6. FAMOTIDINE. [Concomitant]
     Active Substance: FAMOTIDINE
     Indication: ILL-DEFINED DISORDER
     Dosage: UNK, QD (TAKE ONE DAILY AS DIRECTED)
     Dates: start: 20210205
  7. GLYCERYL TRINITRATE [Concomitant]
     Active Substance: NITROGLYCERIN
     Indication: ILL-DEFINED DISORDER
     Dosage: UNK UNK, PRN (ONE PUFF AS NEEDED FOR CHEST PAIN)
     Dates: start: 20210120
  8. GLYCERYL TRINITRATE [Concomitant]
     Active Substance: NITROGLYCERIN
     Indication: CHEST PAIN
  9. OXYBUTYNIN. [Concomitant]
     Active Substance: OXYBUTYNIN CHLORIDE
     Indication: ILL-DEFINED DISORDER
     Dosage: UNK, BID (1 TO BE TAKEN TWICE DAILY)
     Dates: start: 20210127
  10. FUROSEMIDE. [Concomitant]
     Active Substance: FUROSEMIDE
     Indication: ILL-DEFINED DISORDER
     Dosage: 1 DOSAGE FORM, AM (TAKE ONE TABLET EACH MORNING)
     Dates: start: 20210331
  11. RAMIPRIL. [Suspect]
     Active Substance: RAMIPRIL
     Indication: PRODUCT USED FOR UNKNOWN INDICATION
     Dosage: UNK
     Dates: start: 20210510
  12. ATENOLOL. [Concomitant]
     Active Substance: ATENOLOL
     Indication: ILL-DEFINED DISORDER
     Dosage: 1 DOSAGE FORM, QD (TAKE ONE TABLET DAILY)
     Dates: start: 20201209
  13. FLUVASTATIN [Concomitant]
     Active Substance: FLUVASTATIN SODIUM
     Indication: ILL-DEFINED DISORDER
     Dosage: UNK, PM (TAKE ONE EARLY EVENING)
     Dates: start: 20200715
  14. MONOMIL XL [Concomitant]
     Active Substance: ISOSORBIDE MONONITRATE
     Indication: ILL-DEFINED DISORDER
     Dosage: UNK UNK, AM (TAKE HALF TABLET (30MG)EVERY MORNING)
     Dates: start: 20200715
  15. NICORANDIL [Concomitant]
     Active Substance: NICORANDIL
     Indication: ILL-DEFINED DISORDER
     Dosage: UNK UNK, BID (1 TO BE TAKEN TWICE DAILY)
     Dates: start: 20201209

REACTIONS (2)
  - Cough [Recovering/Resolving]
  - Balance disorder [Recovering/Resolving]

NARRATIVE: CASE EVENT DATE: 20210510
